FAERS Safety Report 18274999 (Version 1)
Quarter: 2020Q3

REPORT INFORMATION
  Report Type: Spontaneous
  Country: US (occurrence: US)
  Receive Date: 20200916
  Receipt Date: 20200916
  Transmission Date: 20201103
  Serious: No
  Sender: FDA-Public Use
  Company Number: US-PFIZER INC-2020355177

PATIENT
  Age: 62 Year
  Sex: Female
  Weight: 63.5 kg

DRUGS (6)
  1. LOSARTAN. [Concomitant]
     Active Substance: LOSARTAN
     Indication: BLOOD PRESSURE ABNORMAL
     Dosage: 25 MG, DAILY (25 MG 1 TABLET BY MOUTH DAILY)
     Route: 048
  2. TRIAMTERENE HCTZ [Concomitant]
     Active Substance: HYDROCHLOROTHIAZIDE\TRIAMTERENE
     Indication: BLOOD PRESSURE ABNORMAL
     Dosage: 1 DF, DAILY (37.5?25MG 1 TABLET BY MOUTH DAILY)
     Route: 048
  3. CHILDRENS ASPIRIN [Concomitant]
     Active Substance: ASPIRIN
     Indication: BLOOD PRESSURE ABNORMAL
     Dosage: 81 MG, DAILY (81 MG 1 TABLET BY MOUTH DAILY)
     Route: 048
  4. PREMPRO [Suspect]
     Active Substance: ESTROGENS, CONJUGATED\MEDROXYPROGESTERONE ACETATE
     Indication: POSTMENOPAUSE
     Dosage: 1 DF (0.45MG/1.5MG 1 TABLET BY MOUTH ), DAILY
     Route: 048
     Dates: start: 20200901
  5. CLARITIN [Concomitant]
     Active Substance: LORATADINE
     Indication: HYPERSENSITIVITY
     Dosage: 5 MG, DAILY (5 MG 1 TABLET BY MOUTH DAILY)
     Route: 048
  6. EYEPROMISE [Concomitant]
     Indication: EYE DISORDER PROPHYLAXIS
     Dosage: 1 DF, DAILY (EYE VITAMINS 1 TABLET BY MOUTH DAILY)
     Route: 048

REACTIONS (6)
  - Discomfort [Not Recovered/Not Resolved]
  - Breast swelling [Unknown]
  - Abdominal distension [Not Recovered/Not Resolved]
  - Drug ineffective [Unknown]
  - Fluid retention [Not Recovered/Not Resolved]
  - Breast pain [Not Recovered/Not Resolved]

NARRATIVE: CASE EVENT DATE: 202009
